FAERS Safety Report 26202441 (Version 1)
Quarter: 2025Q4

REPORT INFORMATION
  Report Type: Spontaneous
  Country: US (occurrence: US)
  Receive Date: 20251226
  Receipt Date: 20251226
  Transmission Date: 20260118
  Serious: No
  Sender: LEO PHARM
  Company Number: US-LEO Pharma-385151

PATIENT
  Age: 14 Year
  Sex: Female

DRUGS (2)
  1. ADBRY [Suspect]
     Active Substance: TRALOKINUMAB-LDRM
     Indication: Eczema
     Dosage: TREATMENT ONGOING??1-150 MG SUBCUTANEOUS SYRINGE INJECTION EVERY 14 DAYS THEREAFTER (DATES UNKNOWN).
     Route: 058
  2. ADBRY [Suspect]
     Active Substance: TRALOKINUMAB-LDRM
     Indication: Eczema
     Dosage: TREATMENT ONGOING??TITRATION DOSING: 2-150 MG SUBCUTANEOUS SYRINGE INJECTIONS ON DAY ONE (10/17/2025
     Route: 058
     Dates: start: 20251017

REACTIONS (1)
  - Nasal congestion [Unknown]
